FAERS Safety Report 22169439 (Version 1)
Quarter: 2023Q2

REPORT INFORMATION
  Report Type: Spontaneous
  Country: IT (occurrence: IT)
  Receive Date: 20230404
  Receipt Date: 20230404
  Transmission Date: 20230721
  Serious: No
  Sender: FDA-Public Use
  Company Number: IT-ALKEM LABORATORIES LIMITED-IT-ALKEM-2022-11075

PATIENT
  Age: 12 Year
  Sex: Male

DRUGS (7)
  1. COLCHICINE [Suspect]
     Active Substance: COLCHICINE
     Indication: Pericarditis
     Dosage: UNK
     Route: 065
  2. ANAKINRA [Concomitant]
     Active Substance: ANAKINRA
     Indication: Pericarditis
     Dosage: 1 MILLIGRAM/KILOGRAM, QD (MG/KG/D)
     Route: 065
  3. ANAKINRA [Concomitant]
     Active Substance: ANAKINRA
     Dosage: 100 MILLIGRAMS, (ALTERNATE DAY)
     Route: 065
  4. ANAKINRA [Concomitant]
     Active Substance: ANAKINRA
     Dosage: UNK (TAPPERED)
     Route: 065
  5. INDOMETHACIN [Concomitant]
     Active Substance: INDOMETHACIN
     Indication: Pericarditis
     Dosage: UNK
     Route: 065
  6. PREDNISOLONE [Concomitant]
     Active Substance: PREDNISOLONE
     Indication: Pericarditis
     Dosage: 0.4 MILLIGRAM/KILOGRAM, QD (MG/KG/D)
     Route: 065
  7. PREDNISOLONE [Concomitant]
     Active Substance: PREDNISOLONE
     Dosage: UNK (TAPERED PROGRESSIVELY)
     Route: 065

REACTIONS (1)
  - Drug ineffective [Unknown]
